FAERS Safety Report 14426560 (Version 1)
Quarter: 2018Q1

REPORT INFORMATION
  Report Type: Spontaneous
  Country: US (occurrence: US)
  Receive Date: 20180123
  Receipt Date: 20180123
  Transmission Date: 20180509
  Serious: No
  Sender: FDA-Public Use
  Company Number: US-ROCHE-2044830

PATIENT
  Age: 50 Year
  Sex: Female
  Weight: 74.46 kg

DRUGS (5)
  1. SYNTHROID [Concomitant]
     Active Substance: LEVOTHYROXINE SODIUM
     Dosage: ONGOING:YES
     Route: 065
  2. VESICARE [Concomitant]
     Active Substance: SOLIFENACIN SUCCINATE
     Dosage: ONGOING:YES?BLADDER CONTROL
     Route: 065
  3. KEPPRA [Concomitant]
     Active Substance: LEVETIRACETAM
     Indication: SEIZURE
     Dosage: ONGOING:YES
     Route: 065
  4. MEMANTINE HCL [Concomitant]
     Active Substance: MEMANTINE
     Indication: AMNESIA
     Dosage: ONGOING:YES
     Route: 065
  5. OCREVUS [Suspect]
     Active Substance: OCRELIZUMAB
     Indication: MULTIPLE SCLEROSIS
     Dosage: ONGOING:YES
     Route: 065
     Dates: start: 201712

REACTIONS (2)
  - Flushing [Recovered/Resolved]
  - Pruritus [Recovered/Resolved]

NARRATIVE: CASE EVENT DATE: 201712
